FAERS Safety Report 9358462 (Version 1)
Quarter: 2013Q2

REPORT INFORMATION
  Report Type: Spontaneous
  Country: US (occurrence: None)
  Receive Date: 20130619
  Receipt Date: 20130619
  Transmission Date: 20140414
  Serious: Yes (Other)
  Sender: FDA-Public Use
  Company Number: None

PATIENT
  Age: 55 Year
  Sex: Female
  Weight: 79.38 kg

DRUGS (1)
  1. HUMALOG [Suspect]
     Dosage: SLIDING SCALE AS NEEDED LOT # C0770062AA EXP DATE 10/31/2015

REACTIONS (7)
  - Device failure [None]
  - Blood glucose increased [None]
  - Impaired driving ability [None]
  - Vision blurred [None]
  - Pyrexia [None]
  - Nausea [None]
  - Malaise [None]
